FAERS Safety Report 7907932-8 (Version None)
Quarter: 2011Q4

REPORT INFORMATION
  Report Type: 
  Country: None (occurrence: None)
  Receive Date: 20111110
  Receipt Date: 20111028
  Transmission Date: 20120403
  Serious: Yes (Other)
  Sender: FDA-Public Use
  Company Number: US-RB-033775-11

PATIENT
  Age: 55 Year
  Sex: Male

DRUGS (2)
  1. SUBOXONE [Suspect]
     Route: 060
     Dates: start: 20111001
  2. SUBOXONE [Suspect]
     Indication: DRUG DEPENDENCE
     Route: 060
     Dates: start: 20110301, end: 20111001

REACTIONS (4)
  - DEPRESSION [None]
  - SUICIDAL IDEATION [None]
  - UNDERDOSE [None]
  - DRUG WITHDRAWAL SYNDROME [None]
